FAERS Safety Report 13553214 (Version 1)
Quarter: 2017Q2

REPORT INFORMATION
  Report Type: Spontaneous
  Country: US (occurrence: US)
  Receive Date: 20170516
  Receipt Date: 20170516
  Transmission Date: 20170830
  Serious: No
  Sender: FDA-Public Use
  Company Number: None

PATIENT
  Age: 32 Year
  Sex: Female
  Weight: 68.5 kg

DRUGS (1)
  1. MEPOLIZUMAB [Suspect]
     Active Substance: MEPOLIZUMAB
     Indication: ASTHMA
     Dosage: ?          OTHER FREQUENCY:EVERY 2 WEEKS;?
     Route: 058
     Dates: start: 20170309, end: 20170504

REACTIONS (9)
  - Diarrhoea [None]
  - Headache [None]
  - Malaise [None]
  - Neck pain [None]
  - Pain in extremity [None]
  - Influenza like illness [None]
  - Muscle spasms [None]
  - Abasia [None]
  - Nausea [None]

NARRATIVE: CASE EVENT DATE: 20170509
